FAERS Safety Report 14001905 (Version 1)
Quarter: 2017Q3

REPORT INFORMATION
  Report Type: Spontaneous
  Country: FR (occurrence: FR)
  Receive Date: 20170922
  Receipt Date: 20170922
  Transmission Date: 20171128
  Serious: Yes (Disabling)
  Sender: FDA-Public Use
  Company Number: FR-ABBVIE-17P-056-2109684-00

PATIENT
  Age: 39 Year
  Sex: Male

DRUGS (7)
  1. LYSANXIA [Concomitant]
     Active Substance: PRAZEPAM
     Indication: PRODUCT USED FOR UNKNOWN INDICATION
     Route: 065
  2. DEPAKINE [Concomitant]
     Active Substance: VALPROATE SODIUM
     Indication: PRODUCT USED FOR UNKNOWN INDICATION
     Route: 065
  3. NOCTAMIDE [Suspect]
     Active Substance: LORMETAZEPAM
     Indication: SLEEP DISORDER
     Route: 048
     Dates: start: 2007
  4. LOXAPAC [Suspect]
     Active Substance: LOXAPINE SUCCINATE
     Indication: MENTAL DISORDER
     Route: 048
     Dates: start: 2007
  5. ABILIFY [Suspect]
     Active Substance: ARIPIPRAZOLE
     Indication: MENTAL DISORDER
     Route: 048
     Dates: start: 2007
  6. MEPRONIZINE [Suspect]
     Active Substance: ACEPROMETAZINE MALEATE\MEPROBAMATE
     Indication: SLEEP DISORDER
     Route: 048
     Dates: start: 2007, end: 2009
  7. DEPAKOTE [Suspect]
     Active Substance: DIVALPROEX SODIUM
     Indication: PERSISTENT DEPRESSIVE DISORDER
     Route: 048
     Dates: start: 2007

REACTIONS (15)
  - Tooth disorder [Unknown]
  - Weight increased [Unknown]
  - Insomnia [Unknown]
  - Erectile dysfunction [Recovering/Resolving]
  - Dermatitis allergic [Unknown]
  - Ejaculation delayed [Unknown]
  - Capillary disorder [Unknown]
  - Erectile dysfunction [Not Recovered/Not Resolved]
  - Lethargy [Unknown]
  - Amnesia [Unknown]
  - Urinary incontinence [Not Recovered/Not Resolved]
  - Visual impairment [Unknown]
  - Hypospermia [Unknown]
  - Hypersensitivity [Unknown]
  - Dizziness [Unknown]
